FAERS Safety Report 5387057-9 (Version None)
Quarter: 2007Q3

REPORT INFORMATION
  Report Type: 
  Country: None (occurrence: None)
  Receive Date: 20070709
  Receipt Date: 20070709
  Transmission Date: 20080115
  Serious: Yes (Death, Hospitalization)
  Sender: FDA-Public Use
  Company Number: None

PATIENT
  Age: 81 Year
  Sex: Male

DRUGS (2)
  1. COUMADIN [Suspect]
  2. HEPARIN [Suspect]

REACTIONS (6)
  - BLUE TOE SYNDROME [None]
  - DISSEMINATED INTRAVASCULAR COAGULATION [None]
  - EXTREMITY NECROSIS [None]
  - FAT EMBOLISM [None]
  - PNEUMONIA [None]
  - THROMBOSIS [None]
